FAERS Safety Report 5169683-5 (Version None)
Quarter: 2006Q4

REPORT INFORMATION
  Report Type: 
  Country: None (occurrence: None)
  Receive Date: 20061212
  Receipt Date: 20051020
  Transmission Date: 20070319
  Serious: Yes (Other)
  Sender: FDA-Public Use
  Company Number: PHBS2005BR15731

PATIENT
  Age: 51 Year
  Sex: Male
  Weight: 110 kg

DRUGS (2)
  1. DIOVAN HCT [Suspect]
     Indication: HYPERTENSION
     Dosage: VALS 160 / HCT 12.5 MG/DAY
     Route: 048
     Dates: start: 20050901
  2. ALCOHOL [Suspect]

REACTIONS (13)
  - ALCOHOL USE [None]
  - AMNESIA [None]
  - ASTHENIA [None]
  - DRUG INTERACTION [None]
  - ERYTHEMA [None]
  - FLAT AFFECT [None]
  - GENERALISED ERYTHEMA [None]
  - HEADACHE [None]
  - MALAISE [None]
  - MEMORY IMPAIRMENT [None]
  - METABOLIC DISORDER [None]
  - PAIN IN EXTREMITY [None]
  - SEDATION [None]
